FAERS Safety Report 9126455 (Version 2)
Quarter: 2016Q2

REPORT INFORMATION
  Report Type: Spontaneous
  Country: FI (occurrence: FI)
  Receive Date: 20130121
  Receipt Date: 20160405
  Transmission Date: 20160815
  Serious: Yes (Hospitalization, Disabling)
  Sender: FDA-Public Use
  Company Number: FI-BAXTER-2013BAX001900

PATIENT
  Age: 65 Year
  Sex: Male

DRUGS (22)
  1. HOLOXAN INJEKTIO/INFUUSIOKUIVA-AINE, LIUOSTA VARTEN [Suspect]
     Active Substance: IFOSFAMIDE
     Dosage: SECOND CYCLE
     Route: 042
  2. UROMITEXAN 100 MG/ML INJEKTIONESTE, LIUOS [Suspect]
     Active Substance: MESNA
     Indication: UNDIFFERENTIATED SARCOMA
     Route: 042
     Dates: start: 20120920, end: 20121101
  3. ADRIAMYCIN [Suspect]
     Active Substance: DOXORUBICIN HYDROCHLORIDE
     Indication: UNDIFFERENTIATED SARCOMA
     Route: 042
     Dates: start: 20120920, end: 20121101
  4. HOLOXAN INJEKTIO/INFUUSIOKUIVA-AINE, LIUOSTA VARTEN [Suspect]
     Active Substance: IFOSFAMIDE
     Dosage: THIRD CYCLE
     Route: 042
  5. CIPRALEX [Concomitant]
     Active Substance: ESCITALOPRAM OXALATE
     Indication: DEPRESSION
     Route: 048
  6. OXYCONTIN [Concomitant]
     Active Substance: OXYCODONE HYDROCHLORIDE
     Indication: CANCER PAIN
     Dosage: 20+40 MG
     Route: 048
  7. EMCONCOR [Concomitant]
     Active Substance: BISOPROLOL FUMARATE
     Indication: HYPERTONIA
     Route: 048
  8. GRANISETRON [Concomitant]
     Active Substance: GRANISETRON
     Indication: ANTIEMETIC SUPPORTIVE CARE
     Dosage: FIRST CYCLE
     Route: 065
  9. GRANISETRON [Concomitant]
     Active Substance: GRANISETRON
     Dosage: THIRD CYCLE
     Route: 065
  10. DEXAMETHASONE. [Concomitant]
     Active Substance: DEXAMETHASONE
     Indication: ANTIEMETIC SUPPORTIVE CARE
     Dosage: FIRST CYCLE
     Route: 065
  11. DEXAMETHASONE. [Concomitant]
     Active Substance: DEXAMETHASONE
     Dosage: THIRD CYCLE
     Route: 065
  12. HOLOXAN INJEKTIO/INFUUSIOKUIVA-AINE, LIUOSTA VARTEN [Suspect]
     Active Substance: IFOSFAMIDE
     Dosage: FIRST CYCLE
     Route: 042
  13. DOXORUBICIN [Suspect]
     Active Substance: DOXORUBICIN
     Indication: UNDIFFERENTIATED SARCOMA
     Dosage: FIRST CYCLE
     Route: 065
  14. DOXORUBICIN [Suspect]
     Active Substance: DOXORUBICIN
     Dosage: THIRD CYCLE
     Route: 065
  15. EMEND [Suspect]
     Active Substance: APREPITANT
     Dosage: SECOND CYCLE
     Route: 065
  16. GRANISETRON [Concomitant]
     Active Substance: GRANISETRON
     Dosage: SECOND CYCLE
     Route: 065
  17. HOLOXAN INJEKTIO/INFUUSIOKUIVA-AINE, LIUOSTA VARTEN [Suspect]
     Active Substance: IFOSFAMIDE
     Indication: UNDIFFERENTIATED SARCOMA
     Route: 042
     Dates: start: 20120920, end: 20121101
  18. DOXORUBICIN [Suspect]
     Active Substance: DOXORUBICIN
     Dosage: SECOND CYCLE
     Route: 065
  19. EMEND [Suspect]
     Active Substance: APREPITANT
     Dosage: FIRST CYCLE
     Route: 065
  20. TEGRETOL [Suspect]
     Active Substance: CARBAMAZEPINE
     Indication: DEPRESSION
     Route: 048
     Dates: end: 20121115
  21. DEXAMETHASONE. [Concomitant]
     Active Substance: DEXAMETHASONE
     Dosage: SECOND CYCLE
     Route: 065
  22. EMEND [Suspect]
     Active Substance: APREPITANT
     Indication: NAUSEA
     Dosage: 125-80 MG
     Route: 048
     Dates: start: 20120920, end: 20121012

REACTIONS (3)
  - Blood creatinine increased [Unknown]
  - Dyspnoea [Unknown]
  - Encephalopathy [Recovered/Resolved]

NARRATIVE: CASE EVENT DATE: 20121012
